FAERS Safety Report 19358419 (Version 2)
Quarter: 2021Q3

REPORT INFORMATION
  Report Type: Spontaneous
  Country: US (occurrence: US)
  Receive Date: 20210602
  Receipt Date: 20210714
  Transmission Date: 20211014
  Serious: Yes (Hospitalization, Other)
  Sender: FDA-Public Use
  Company Number: US-ASTRAZENECA-2021A481059

PATIENT
  Age: 879 Month
  Sex: Female
  Weight: 45.4 kg

DRUGS (1)
  1. BREZTRI AEROSPHERE [Suspect]
     Active Substance: BUDESONIDE\FORMOTEROL\GLYCOPYRRONIUM
     Indication: CHRONIC OBSTRUCTIVE PULMONARY DISEASE
     Dosage: 160/7.2/5.0MCG,2 PUFFS, TWO TIMES A DAY
     Route: 055

REACTIONS (13)
  - Device malfunction [Unknown]
  - Product dose omission issue [Unknown]
  - Pneumonitis [Unknown]
  - Illness [Unknown]
  - Hypersensitivity [Unknown]
  - Drug ineffective [Unknown]
  - Hyperphagia [Unknown]
  - Pneumonia [Unknown]
  - Sneezing [Unknown]
  - Product packaging quantity issue [Unknown]
  - Incorrect dose administered by device [Unknown]
  - Intentional device misuse [Unknown]
  - Cough [Unknown]

NARRATIVE: CASE EVENT DATE: 202012
